FAERS Safety Report 15410860 (Version 2)
Quarter: 2018Q3

REPORT INFORMATION
  Report Type: Spontaneous
  Country: AU (occurrence: AU)
  Receive Date: 20180921
  Receipt Date: 20180928
  Transmission Date: 20181010
  Serious: Yes (Hospitalization)
  Sender: FDA-Public Use
  Company Number: AU-ACCORD-072619

PATIENT
  Sex: Female

DRUGS (4)
  1. CLARATYNE [Concomitant]
     Active Substance: LORATADINE
     Dosage: STRENGTH: 10 MG
  2. MONTELUKAST [Suspect]
     Active Substance: MONTELUKAST SODIUM
     Indication: PRODUCT USED FOR UNKNOWN INDICATION
     Dosage: STRENGTH: 10 MG
  3. FEXOFENADINE [Concomitant]
     Active Substance: FEXOFENADINE\FEXOFENADINE HYDROCHLORIDE
  4. RANITIDINE. [Concomitant]
     Active Substance: RANITIDINE
     Dosage: STRENGTH: 300 MG

REACTIONS (6)
  - Throat irritation [Unknown]
  - Drug intolerance [Unknown]
  - Cough [Unknown]
  - Insomnia [Unknown]
  - Swelling face [Unknown]
  - Dyspnoea [Unknown]
